FAERS Safety Report 19522040 (Version 1)
Quarter: 2021Q3

REPORT INFORMATION
  Report Type: Spontaneous
  Country: HU (occurrence: HU)
  Receive Date: 20210712
  Receipt Date: 20210712
  Transmission Date: 20211014
  Serious: Yes (Other)
  Sender: FDA-Public Use
  Company Number: HU-MYLANLABS-2021M1040484

PATIENT
  Age: 70 Year
  Sex: Male

DRUGS (3)
  1. ZOLEDRONIC ACID [Suspect]
     Active Substance: ZOLEDRONIC ACID
     Indication: PRODUCT USED FOR UNKNOWN INDICATION
     Dosage: UNK UNK, Q3W(UNK (EVERY 3 WEEKS) (INJECTION))
     Route: 065
     Dates: start: 20190702
  2. MEKINIST [Suspect]
     Active Substance: TRAMETINIB DIMETHYL SULFOXIDE
     Indication: NON-SMALL CELL LUNG CANCER
     Dosage: 2 MILLIGRAM, QD (2 MG, QD)
     Route: 065
     Dates: start: 20190702
  3. TAFINLAR [Suspect]
     Active Substance: DABRAFENIB MESYLATE
     Indication: NON-SMALL CELL LUNG CANCER
     Dosage: 2 DOSAGE FORM (2 DF (2X2))
     Route: 065
     Dates: start: 20190702

REACTIONS (9)
  - Squamous cell carcinoma [Unknown]
  - Pyrexia [Recovered/Resolved]
  - Non-small cell lung cancer [Unknown]
  - Fatigue [Unknown]
  - Aspartate aminotransferase increased [Unknown]
  - Sinus cancer metastatic [Unknown]
  - Hydrothorax [Unknown]
  - Gamma-glutamyltransferase increased [Unknown]
  - Alanine aminotransferase increased [Unknown]

NARRATIVE: CASE EVENT DATE: 2019
